FAERS Safety Report 6243945-2 (Version None)
Quarter: 2009Q2

REPORT INFORMATION
  Report Type: 
  Country: None (occurrence: None)
  Receive Date: 20090623
  Receipt Date: 20090611
  Transmission Date: 20091009
  Serious: Yes (Other)
  Sender: FDA-Public Use
  Company Number: 235812K09USA

PATIENT
  Age: 50 Year
  Sex: Female
  Weight: 73 kg

DRUGS (4)
  1. REBIF [Suspect]
     Indication: MULTIPLE SCLEROSIS
     Dosage: 44 MCG, 3 IN 1 WEEKS, SUBCUTANEOUS
     Route: 058
     Dates: start: 20060808, end: 20090302
  2. NEURONTIN [Concomitant]
  3. NORVASC [Concomitant]
  4. BENICAR [Concomitant]

REACTIONS (6)
  - DEVICE BREAKAGE [None]
  - FAILURE OF IMPLANT [None]
  - FATIGUE [None]
  - PAIN [None]
  - SCAR [None]
  - VISUAL ACUITY REDUCED [None]
